FAERS Safety Report 10389552 (Version 1)
Quarter: 2014Q3

REPORT INFORMATION
  Report Type: Report from Study
  Country: US (occurrence: US)
  Receive Date: 20140818
  Receipt Date: 20140818
  Transmission Date: 20150326
  Serious: Yes (Hospitalization)
  Sender: FDA-Public Use
  Company Number: US-B.I. PHARMACEUTICALS,INC./RIDGEFIELD-2014-BI-37799BI

PATIENT
  Age: 76 Year
  Sex: Female
  Weight: 80.3 kg

DRUGS (9)
  1. PRADAXA [Suspect]
     Active Substance: DABIGATRAN ETEXILATE MESYLATE
     Indication: ATRIAL FIBRILLATION
     Dosage: 150 MG
     Route: 048
     Dates: start: 20130326, end: 20140604
  2. MAGNESIUM SULFATE [Concomitant]
     Active Substance: MAGNESIUM SULFATE
     Indication: ELECTROLYTE SUBSTITUTION THERAPY
     Dosage: 2 G
     Route: 042
     Dates: start: 20140603, end: 20140604
  3. POTASSIUM CHLORIDE. [Concomitant]
     Active Substance: POTASSIUM CHLORIDE
     Dosage: FORMULATION: INJECTION ; ROUTE: IV PIGGYBACK ; DOSE PER APPLICATION AND DAILY DOSE: 40MEQ = 400ML
     Route: 050
     Dates: start: 20140603, end: 20140604
  4. METOPROLOL [Concomitant]
     Active Substance: METOPROLOL
     Indication: HYPERTENSION
     Dosage: 100 MG
     Route: 048
     Dates: start: 20111010, end: 20140603
  5. OMEPRAZOLE. [Concomitant]
     Active Substance: OMEPRAZOLE
     Indication: ABDOMINAL DISCOMFORT
     Dosage: 40 MG
     Route: 048
     Dates: end: 20140603
  6. POTASSIUM CHLORIDE. [Concomitant]
     Active Substance: POTASSIUM CHLORIDE
     Indication: ELECTROLYTE SUBSTITUTION THERAPY
     Dosage: DOSE PER APPLICATION AND DAILY DOSE: 40MEQ = 30ML
     Route: 048
     Dates: start: 20140603, end: 20140603
  7. ONDANSETRON [Concomitant]
     Active Substance: ONDANSETRON
     Indication: NAUSEA
     Dosage: 24 MG
     Route: 048
     Dates: start: 20140311
  8. PANTOPRAZOLE [Concomitant]
     Active Substance: PANTOPRAZOLE SODIUM
     Indication: ABDOMINAL DISCOMFORT
     Dosage: 20 MG
     Route: 048
     Dates: start: 20140603, end: 20140603
  9. ONDANSETRON [Concomitant]
     Active Substance: ONDANSETRON
     Dosage: FORMULATION: INJECTABLE ; ROUTE: IV PUSH ; DOSE PER APPLICATION AND DAILY DOSE: 4MG = 2ML
     Route: 050
     Dates: start: 20140604, end: 20140604

REACTIONS (3)
  - Diarrhoea [Unknown]
  - Electrolyte imbalance [Unknown]
  - Dehydration [Unknown]

NARRATIVE: CASE EVENT DATE: 20140602
